FAERS Safety Report 4767363-9 (Version None)
Quarter: 2005Q3

REPORT INFORMATION
  Report Type: 
  Country: None (occurrence: None)
  Receive Date: 20050913
  Receipt Date: 20050901
  Transmission Date: 20060218
  Serious: Yes (Hospitalization, Disabling)
  Sender: FDA-Public Use
  Company Number: PL-ROCHE-416502

PATIENT
  Age: 46 Year
  Sex: Female
  Weight: 53 kg

DRUGS (6)
  1. PEGASYS [Suspect]
     Indication: DRUG USE FOR UNKNOWN INDICATION
     Route: 058
     Dates: start: 20050531, end: 20050621
  2. PEGASYS [Suspect]
     Route: 058
     Dates: start: 20050628, end: 20050712
  3. PEGASYS [Suspect]
     Route: 058
     Dates: start: 20050719, end: 20050823
  4. PARACETAMOL [Concomitant]
     Indication: SHOULDER PAIN
     Route: 042
  5. NON-STEROIDAL ANTI-INFLAMMATORY DRUG [Concomitant]
     Indication: SHOULDER PAIN
  6. EPOGEN [Concomitant]

REACTIONS (5)
  - ANAEMIA [None]
  - ARTHRALGIA [None]
  - HAEMOPTYSIS [None]
  - INTRASPINAL ABSCESS [None]
  - PARALYSIS FLACCID [None]
